FAERS Safety Report 21405508 (Version 1)
Quarter: 2022Q4

REPORT INFORMATION
  Report Type: Report from Study
  Country: CA (occurrence: CA)
  Receive Date: 20221004
  Receipt Date: 20221004
  Transmission Date: 20230113
  Serious: Yes (Hospitalization)
  Sender: FDA-Public Use
  Company Number: CA-ABBVIE-4135363

PATIENT
  Sex: Male

DRUGS (1)
  1. SKYRIZI [Suspect]
     Active Substance: RISANKIZUMAB-RZAA
     Indication: Psoriasis
     Route: 058
     Dates: start: 20220816

REACTIONS (7)
  - Cholecystectomy [Unknown]
  - Hot flush [Unknown]
  - Cough [Unknown]
  - Nasopharyngitis [Unknown]
  - SARS-CoV-2 test positive [Unknown]
  - Chills [Unknown]
  - Influenza [Unknown]

NARRATIVE: CASE EVENT DATE: 20220101
